FAERS Safety Report 7418816-6 (Version None)
Quarter: 2011Q2

REPORT INFORMATION
  Report Type: 
  Country: None (occurrence: None)
  Receive Date: 20110415
  Receipt Date: 20110408
  Transmission Date: 20111010
  Serious: Yes (Hospitalization)
  Sender: FDA-Public Use
  Company Number: CA-B.I. PHARMACEUTICALS,INC./RIDGEFIELD-2011-CN-00363CN

PATIENT
  Age: 84 Year
  Sex: Female

DRUGS (2)
  1. HYDROMORPHONE HCL [Concomitant]
  2. PRADAXA [Suspect]
     Indication: ATRIAL FIBRILLATION
     Dosage: 220 MG

REACTIONS (2)
  - LOWER GASTROINTESTINAL HAEMORRHAGE [None]
  - ANAL FISSURE [None]
